FAERS Safety Report 6253801-1 (Version None)
Quarter: 2009Q3

REPORT INFORMATION
  Report Type: 
  Country: None (occurrence: None)
  Receive Date: 20090702
  Receipt Date: 20071108
  Transmission Date: 20100115
  Serious: Yes (Hospitalization)
  Sender: FDA-Public Use
  Company Number: US-ASTRAZENECA-2006UW22873

PATIENT
  Age: 15209 Day
  Sex: Female
  Weight: 79.8 kg

DRUGS (27)
  1. SEROQUEL [Suspect]
     Indication: SCHIZOPHRENIA
     Route: 048
     Dates: start: 19980101
  2. SEROQUEL [Suspect]
     Dosage: 10 MG-300 MG DAILY
     Route: 048
     Dates: start: 20040606
  3. ZYPREXA [Concomitant]
  4. TRAZODONE HCL [Concomitant]
  5. TRAZODONE HCL [Concomitant]
     Dosage: 100 MG-150 MG DAILY
     Dates: start: 20030818
  6. EFFEXOR [Concomitant]
     Dosage: 50 MG-150 MG DAILY
     Dates: start: 19990218
  7. TIAZAC [Concomitant]
     Dosage: 180 MG-240 MG DAILY
     Dates: start: 19990218
  8. PREVACID [Concomitant]
     Dates: start: 19990218
  9. NITROGLYCERIN [Concomitant]
     Dates: start: 19990218
  10. NAVANE [Concomitant]
     Dates: start: 19990218
  11. COGENTIN [Concomitant]
     Dates: start: 19990218
  12. ISMO [Concomitant]
     Dates: start: 19990218
  13. VISTARIL [Concomitant]
     Dates: start: 19990218
  14. RISPERDAL [Concomitant]
     Dates: start: 19960406
  15. PREMARIN [Concomitant]
     Dates: start: 19960406
  16. SERZONE [Concomitant]
     Dates: start: 19960406
  17. TYLENOL (CAPLET) [Concomitant]
     Dates: start: 19960406
  18. HALDOL [Concomitant]
     Dates: start: 19960406
  19. VENTOLIN [Concomitant]
     Dates: start: 19960406
  20. ATIVAN [Concomitant]
     Dates: start: 19960406
  21. AMBIEN [Concomitant]
     Dates: start: 19960406
  22. ASPIRIN [Concomitant]
     Dates: start: 20030818
  23. LIPITOR [Concomitant]
     Dates: start: 20030818
  24. ATENOLOL [Concomitant]
     Dosage: 50 MG-100 MG DAILY
     Dates: start: 20030818
  25. ACCURETIC [Concomitant]
     Dosage: 20/12.5 MG DAILY
     Dates: start: 20030818
  26. NITROGLYCERIN [Concomitant]
     Dates: start: 20050526
  27. CYMBALTA [Concomitant]
     Dates: start: 20050526

REACTIONS (4)
  - CHOLECYSTITIS ACUTE [None]
  - CHOLELITHIASIS [None]
  - DIABETES MELLITUS [None]
  - TYPE 1 DIABETES MELLITUS [None]
